FAERS Safety Report 10356268 (Version 3)
Quarter: 2014Q4

REPORT INFORMATION
  Report Type: Report from Study
  Country: BR (occurrence: BR)
  Receive Date: 20140801
  Receipt Date: 20141126
  Transmission Date: 20150528
  Serious: Yes (Other)
  Sender: FDA-Public Use
  Company Number: BR-BRISTOL-MYERS SQUIBB COMPANY-21246905

PATIENT
  Age: 64 Year
  Sex: Female
  Weight: 57 kg

DRUGS (5)
  1. LEUCOVORIN [Concomitant]
     Active Substance: LEUCOVORIN
  2. FLUOROURACIL. [Concomitant]
     Active Substance: FLUOROURACIL
  3. ATENOLOL. [Concomitant]
     Active Substance: ATENOLOL
  4. ERBITUX [Suspect]
     Active Substance: CETUXIMAB
     Indication: COLORECTAL CANCER METASTATIC
     Dosage: 8 CYCLES?LAST INF:15JUL14?12 AUG 2014:RECENT DOSE
     Route: 042
     Dates: start: 201402
  5. IRINOTECAN [Concomitant]
     Active Substance: IRINOTECAN

REACTIONS (8)
  - Immunodeficiency [Not Recovered/Not Resolved]
  - Epistaxis [Not Recovered/Not Resolved]
  - Dry skin [Recovered/Resolved]
  - Erythema [Recovered/Resolved]
  - Rash [Recovered/Resolved]
  - Acne [Recovered/Resolved]
  - Pain [Not Recovered/Not Resolved]
  - Skin burning sensation [Recovered/Resolved]

NARRATIVE: CASE EVENT DATE: 201406
